FAERS Safety Report 23161433 (Version 2)
Quarter: 2023Q4

REPORT INFORMATION
  Report Type: Report from Study
  Country: US (occurrence: US)
  Receive Date: 20231108
  Receipt Date: 20231115
  Transmission Date: 20240109
  Serious: Yes (Other)
  Sender: FDA-Public Use
  Company Number: US-ABBVIE-5486604

PATIENT
  Sex: Male

DRUGS (3)
  1. DUOPA [Suspect]
     Active Substance: CARBIDOPA\LEVODOPA
     Indication: Parkinson^s disease
     Dosage: LAST ADMIN DATE: 2023
     Route: 050
     Dates: start: 20230808
  2. DUOPA [Suspect]
     Active Substance: CARBIDOPA\LEVODOPA
     Dosage: LAST ADMIN DATE: 2023
     Route: 050
     Dates: start: 20230910
  3. DUOPA [Suspect]
     Active Substance: CARBIDOPA\LEVODOPA
     Dosage: LAST ADMIN DATE: NOV 2023
     Route: 050
     Dates: start: 20231104

REACTIONS (10)
  - Surgery [Recovering/Resolving]
  - On and off phenomenon [Recovered/Resolved]
  - Device issue [Recovering/Resolving]
  - Somnolence [Recovering/Resolving]
  - On and off phenomenon [Not Recovered/Not Resolved]
  - Tremor [Recovering/Resolving]
  - Drooling [Recovering/Resolving]
  - Heart rate increased [Recovering/Resolving]
  - Anxiety [Recovering/Resolving]
  - Pyrexia [Recovering/Resolving]

NARRATIVE: CASE EVENT DATE: 20230101
